FAERS Safety Report 4543957-0 (Version None)
Quarter: 2005Q1

REPORT INFORMATION
  Report Type: 
  Country: None (occurrence: None)
  Receive Date: 20050103
  Receipt Date: 20031027
  Transmission Date: 20050727
  Serious: Yes (Hospitalization)
  Sender: FDA-Public Use
  Company Number: GXKR2003GB00513

PATIENT
  Age: 74 Year
  Sex: Female

DRUGS (2)
  1. AZATHIOPRINE (NGX) (AZATHIOPRINE) [Suspect]
     Indication: SYSTEMIC LUPUS ERYTHEMATOSUS
     Dosage: ORAL
     Route: 048
     Dates: end: 20030925
  2. WARFARIN (NGX) (WARFARIN) [Suspect]
     Indication: ATRIAL FIBRILLATION
     Dosage: 9 MG, ORAL
     Route: 048
     Dates: end: 20031018

REACTIONS (2)
  - INTERNATIONAL NORMALISED RATIO INCREASED [None]
  - LEUKOPENIA [None]
